FAERS Safety Report 9598008 (Version 1)
Quarter: 2013Q4

REPORT INFORMATION
  Report Type: Spontaneous
  Country: US (occurrence: US)
  Receive Date: 20131004
  Receipt Date: 20131004
  Transmission Date: 20140711
  Serious: No
  Sender: FDA-Public Use
  Company Number: US-AMGEN-USASP2013022086

PATIENT
  Age: 54 Year
  Sex: Female

DRUGS (5)
  1. ENBREL [Suspect]
     Indication: PRODUCT USED FOR UNKNOWN INDICATION
     Dosage: 50 MG, TWICE A WEEK FOR 12 WEEKS THEN ONCE A WEEK THEREAFTER
     Route: 058
  2. ZOLOFT [Concomitant]
     Dosage: 50 MG, UNK
  3. LAMICTAL [Concomitant]
     Dosage: 150 MG, UNK
  4. VITAMIN D                          /00107901/ [Concomitant]
     Dosage: 400 UNIT, UNK
  5. OMEGA 3                            /01334101/ [Concomitant]
     Dosage: 340 MG, UNK

REACTIONS (1)
  - Therapeutic response decreased [Unknown]
